FAERS Safety Report 12202012 (Version 3)
Quarter: 2016Q2

REPORT INFORMATION
  Report Type: Spontaneous
  Country: US (occurrence: US)
  Receive Date: 20160322
  Receipt Date: 20160511
  Transmission Date: 20160815
  Serious: Yes (Hospitalization)
  Sender: FDA-Public Use
  Company Number: US-PFIZER INC-2016167164

PATIENT
  Age: 70 Year
  Sex: Male
  Weight: 119.29 kg

DRUGS (1)
  1. VIAGRA [Suspect]
     Active Substance: SILDENAFIL CITRATE
     Indication: ERECTILE DYSFUNCTION
     Dosage: 100 MG, 1 PER DAY
     Route: 048

REACTIONS (2)
  - Expired product administered [Unknown]
  - Volvulus [Not Recovered/Not Resolved]
